FAERS Safety Report 10741678 (Version 1)
Quarter: 2015Q1

REPORT INFORMATION
  Report Type: Spontaneous
  Country: US (occurrence: None)
  Receive Date: 20150123
  Receipt Date: 20150123
  Transmission Date: 20150721
  Serious: Yes (Disabling, Congenital Anomaly)
  Sender: FDA-Public Use
  Company Number: ABR_01936_2015

PATIENT

DRUGS (1)
  1. LAMOTRIGINE. [Suspect]
     Active Substance: LAMOTRIGINE
     Indication: MATERNAL EXPOSURE DURING PREGNANCY
     Dosage: DF UNKNOWN UNTIL NOT CONTINUINNG

REACTIONS (3)
  - Speech disorder developmental [None]
  - Hypotonia neonatal [None]
  - Maternal drugs affecting foetus [None]
